FAERS Safety Report 8111680-1 (Version None)
Quarter: 2012Q1

REPORT INFORMATION
  Report Type: 
  Country: None (occurrence: None)
  Receive Date: 20120203
  Receipt Date: 20120124
  Transmission Date: 20120608
  Serious: Yes (Hospitalization)
  Sender: FDA-Public Use
  Company Number: CA-JNJFOC-20111006780

PATIENT
  Sex: Female

DRUGS (1)
  1. REMICADE [Suspect]
     Indication: CROHN'S DISEASE
     Route: 042
     Dates: end: 20110901

REACTIONS (5)
  - NERVE INJURY [None]
  - PERONEAL NERVE PALSY [None]
  - THROMBOSIS [None]
  - OSTEOARTHRITIS [None]
  - INFECTION [None]
